FAERS Safety Report 15836131 (Version 2)
Quarter: 2019Q1

REPORT INFORMATION
  Report Type: Spontaneous
  Country: ES (occurrence: ES)
  Receive Date: 20190117
  Receipt Date: 20190123
  Transmission Date: 20190417
  Serious: Yes (Other)
  Sender: FDA-Public Use
  Company Number: ES-ASTRAZENECA-2019SE03182

PATIENT
  Age: 11 Year
  Sex: Female

DRUGS (6)
  1. XYLOMETAZOLINE HYDROCHLORIDE [Interacting]
     Active Substance: XYLOMETAZOLINE HYDROCHLORIDE
     Indication: PRODUCT USED FOR UNKNOWN INDICATION
     Dosage: UNK
     Route: 065
     Dates: start: 20181007
  2. ESTILSONA [Concomitant]
     Indication: NASOPHARYNGITIS
     Dosage: UNK
     Dates: start: 201810, end: 201810
  3. VENTOLIN [Interacting]
     Active Substance: ALBUTEROL SULFATE
     Indication: ASTHMA
     Dosage: UNK
     Route: 065
  4. RHINOVIN INFANTIL [Interacting]
     Active Substance: XYLOMETAZOLINE HYDROCHLORIDE
     Indication: PRODUCT USED FOR UNKNOWN INDICATION
     Dosage: UNK
     Route: 065
     Dates: start: 20181007, end: 201810
  5. ACTITHIOL ANTIHIST [Concomitant]
     Indication: NASOPHARYNGITIS
     Dosage: UNK
     Dates: start: 201810, end: 201810
  6. BUDESONIDE. [Suspect]
     Active Substance: BUDESONIDE
     Indication: ASTHMA
     Dosage: UNK
     Route: 055

REACTIONS (8)
  - Muscle rigidity [Recovered/Resolved]
  - Product use issue [Unknown]
  - Sleep terror [Recovered/Resolved]
  - Speech disorder [Recovered/Resolved]
  - Movement disorder [Recovered/Resolved]
  - Drug interaction [Unknown]
  - Oral disorder [Recovered/Resolved]
  - Epilepsy [Recovered/Resolved]

NARRATIVE: CASE EVENT DATE: 20181008
